FAERS Safety Report 12474416 (Version 1)
Quarter: 2016Q2

REPORT INFORMATION
  Report Type: Spontaneous
  Country: US (occurrence: None)
  Receive Date: 20160616
  Receipt Date: 20160616
  Transmission Date: 20160815
  Serious: No
  Sender: FDA-Public Use
  Company Number: None

PATIENT
  Age: 79 Year
  Sex: Female
  Weight: 77.11 kg

DRUGS (10)
  1. ASPIRIN. [Concomitant]
     Active Substance: ASPIRIN
  2. MOXIFLOXACIN 400 MG TABLETS TEVA [Suspect]
     Active Substance: MOXIFLOXACIN
     Indication: DIVERTICULITIS
     Route: 048
     Dates: start: 20160120, end: 20160121
  3. MULTIVITAMIN [Concomitant]
     Active Substance: VITAMINS
  4. FISH OIL [Concomitant]
     Active Substance: FISH OIL
  5. ZETIA [Concomitant]
     Active Substance: EZETIMIBE
  6. INVOKANA [Concomitant]
     Active Substance: CANAGLIFLOZIN
  7. JANUVIA [Concomitant]
     Active Substance: SITAGLIPTIN PHOSPHATE
  8. CALCIUM W D3 + K [Concomitant]
  9. WALSARTAN [Concomitant]
  10. ATENOLOL. [Concomitant]
     Active Substance: ATENOLOL

REACTIONS (2)
  - Tinnitus [None]
  - Deafness [None]
